FAERS Safety Report 26176746 (Version 1)
Quarter: 2025Q4

REPORT INFORMATION
  Report Type: Spontaneous
  Country: EU (occurrence: EU)
  Receive Date: 20251218
  Receipt Date: 20251218
  Transmission Date: 20260118
  Serious: Yes (Life-Threatening)
  Sender: JOHNSON AND JOHNSON
  Company Number: None

PATIENT
  Age: 46 Year
  Sex: Female

DRUGS (1)
  1. REMICADE [Suspect]
     Active Substance: INFLIXIMAB
     Indication: Rheumatoid arthritis
     Dosage: 300 MG IN 250 ML NACL 0.9%
     Route: 041
     Dates: start: 20251205, end: 20251205

REACTIONS (7)
  - Dyspnoea [Recovering/Resolving]
  - Malaise [Recovering/Resolving]
  - Headache [Recovering/Resolving]
  - Back pain [Recovering/Resolving]
  - Chest pain [Recovering/Resolving]
  - Anaphylactic reaction [Recovering/Resolving]
  - Angioedema [Recovering/Resolving]
